FAERS Safety Report 6891886-X (Version None)
Quarter: 2010Q3

REPORT INFORMATION
  Report Type: 
  Country: None (occurrence: None)
  Receive Date: 20100731
  Receipt Date: 20071102
  Transmission Date: 20110219
  Serious: No
  Sender: FDA-Public Use
  Company Number: US-PFIZER INC-2007093504

PATIENT
  Sex: Male
  Weight: 99.79 kg

DRUGS (6)
  1. NORVASC [Suspect]
     Indication: CARDIAC OPERATION
     Dates: start: 19920101
  2. AMLODIPINE [Suspect]
     Indication: CARDIAC OPERATION
     Dates: start: 20070101
  3. TOPROL-XL [Concomitant]
  4. LISINOPRIL [Concomitant]
  5. LIPITOR [Concomitant]
  6. WELCHOL [Concomitant]

REACTIONS (1)
  - DIZZINESS [None]
